FAERS Safety Report 18169332 (Version 1)
Quarter: 2020Q3

REPORT INFORMATION
  Report Type: Other
  Country: FR (occurrence: FR)
  Receive Date: 20200818
  Receipt Date: 20200818
  Transmission Date: 20201103
  Serious: Yes (Other)
  Sender: FDA-Public Use
  Company Number: FR-ROCHE-2631737

PATIENT
  Age: 59 Year
  Sex: Male
  Weight: 66 kg

DRUGS (5)
  1. TERCIAN [Concomitant]
     Active Substance: CYAMEMAZINE
  2. SERESTA [Concomitant]
     Active Substance: OXAZEPAM
  3. SPASFON [Concomitant]
  4. ATEZOLIZUMAB. [Suspect]
     Active Substance: ATEZOLIZUMAB
     Indication: PRODUCT USED FOR UNKNOWN INDICATION
     Dosage: ON 25/MAR/2020, HE RECEIVED THE LAST DOSE OF ATEZOLIZUMAB PRIOR TO AE/SAE ONSET.?HE RECEIVED THE SUB
     Route: 041
     Dates: start: 20190919
  5. DAFALGAN CODEINE [Concomitant]
     Active Substance: ACETAMINOPHEN\CODEINE PHOSPHATE

REACTIONS (2)
  - Decreased appetite [Not Recovered/Not Resolved]
  - Hepatocellular injury [Recovered/Resolved]

NARRATIVE: CASE EVENT DATE: 20200323
